FAERS Safety Report 17453260 (Version 1)
Quarter: 2020Q1

REPORT INFORMATION
  Report Type: Spontaneous
  Country: US (occurrence: US)
  Receive Date: 20200224
  Receipt Date: 20200224
  Transmission Date: 20200409
  Serious: No
  Sender: FDA-Public Use
  Company Number: US-PERRIGO-19US005194

PATIENT
  Sex: Male
  Weight: 90.7 kg

DRUGS (2)
  1. LOPERAMIDE HYDROCHLORIDE. [Suspect]
     Active Substance: LOPERAMIDE HYDROCHLORIDE
     Indication: ANAL INCONTINENCE
  2. LOPERAMIDE HYDROCHLORIDE. [Suspect]
     Active Substance: LOPERAMIDE HYDROCHLORIDE
     Indication: FAECES HARD
     Dosage: 2 MG, QD
     Route: 048

REACTIONS (2)
  - Incorrect product administration duration [Unknown]
  - Drug ineffective for unapproved indication [Unknown]
